FAERS Safety Report 5013353-0 (Version None)
Quarter: 2006Q2

REPORT INFORMATION
  Report Type: 
  Country: None (occurrence: None)
  Receive Date: 20060530
  Receipt Date: 20060418
  Transmission Date: 20061013
  Serious: No
  Sender: FDA-Public Use
  Company Number: US-GLAXOSMITHKLINE-A0602152A

PATIENT
  Age: 58 Year
  Sex: Male

DRUGS (7)
  1. WELLBUTRIN XL [Suspect]
     Indication: DRUG USE FOR UNKNOWN INDICATION
     Dosage: 300MG TWICE PER DAY
     Route: 048
     Dates: start: 20060418
  2. LISINOPRIL [Concomitant]
  3. NORVASC [Concomitant]
  4. LOTREL [Concomitant]
  5. LIPITOR [Concomitant]
  6. METOCLOPRAMIDE [Concomitant]
  7. RANITIDINE [Concomitant]

REACTIONS (1)
  - DRUG PRESCRIBING ERROR [None]
